FAERS Safety Report 15879861 (Version 1)
Quarter: 2019Q1

REPORT INFORMATION
  Report Type: Spontaneous
  Country: CN (occurrence: CN)
  Receive Date: 20190128
  Receipt Date: 20190128
  Transmission Date: 20190417
  Serious: Yes (Other)
  Sender: FDA-Public Use
  Company Number: CN-ROCHE-2249802

PATIENT
  Age: 63 Year
  Sex: Female

DRUGS (15)
  1. CYCLOPHOSPHAMIDE. [Concomitant]
     Active Substance: CYCLOPHOSPHAMIDE
     Indication: DIFFUSE LARGE B-CELL LYMPHOMA
     Dosage: TID, D1-7
     Route: 048
     Dates: start: 20170315
  2. VINCRISTINE [Concomitant]
     Active Substance: VINCRISTINE
     Indication: NON-HODGKIN^S LYMPHOMA
     Route: 065
     Dates: start: 20160720, end: 20170109
  3. PREDNISONE. [Concomitant]
     Active Substance: PREDNISONE
     Route: 048
     Dates: start: 20170511, end: 20170603
  4. LENALIDOMIDE [Concomitant]
     Active Substance: LENALIDOMIDE
     Indication: NON-HODGKIN^S LYMPHOMA
     Dosage: QD, D1-14
     Route: 065
     Dates: start: 20170315
  5. RITUXIMAB. [Suspect]
     Active Substance: RITUXIMAB
     Indication: NON-HODGKIN^S LYMPHOMA
     Route: 065
     Dates: start: 20160720, end: 20170109
  6. DOXORUBICIN [Concomitant]
     Active Substance: DOXORUBICIN
     Indication: NON-HODGKIN^S LYMPHOMA
     Route: 065
     Dates: start: 20160720, end: 20170109
  7. PREDNISONE. [Concomitant]
     Active Substance: PREDNISONE
     Indication: NON-HODGKIN^S LYMPHOMA
     Route: 065
     Dates: start: 20160720, end: 20170109
  8. PREDNISONE. [Concomitant]
     Active Substance: PREDNISONE
     Indication: DIFFUSE LARGE B-CELL LYMPHOMA
     Dosage: QD, D1-7,Q21D
     Route: 065
     Dates: start: 20170315
  9. LENALIDOMIDE [Concomitant]
     Active Substance: LENALIDOMIDE
     Indication: DIFFUSE LARGE B-CELL LYMPHOMA
     Route: 048
     Dates: start: 20170607
  10. RITUXIMAB. [Suspect]
     Active Substance: RITUXIMAB
     Indication: DIFFUSE LARGE B-CELL LYMPHOMA
  11. VINCRISTINE [Concomitant]
     Active Substance: VINCRISTINE
     Indication: DIFFUSE LARGE B-CELL LYMPHOMA
  12. ETOPOSIDE. [Concomitant]
     Active Substance: ETOPOSIDE
     Indication: NON-HODGKIN^S LYMPHOMA
     Dosage: D1-10
     Route: 065
     Dates: start: 20170315
  13. ETOPOSIDE. [Concomitant]
     Active Substance: ETOPOSIDE
     Indication: DIFFUSE LARGE B-CELL LYMPHOMA
  14. CYCLOPHOSPHAMIDE. [Concomitant]
     Active Substance: CYCLOPHOSPHAMIDE
     Indication: NON-HODGKIN^S LYMPHOMA
     Route: 048
     Dates: start: 20160720, end: 20170109
  15. DOXORUBICIN [Concomitant]
     Active Substance: DOXORUBICIN
     Indication: DIFFUSE LARGE B-CELL LYMPHOMA

REACTIONS (8)
  - Pain in extremity [Unknown]
  - Bone marrow failure [Unknown]
  - Neoplasm [Unknown]
  - Peripheral swelling [Unknown]
  - Cough [Recovered/Resolved]
  - Erythema [Unknown]
  - Pyrexia [Unknown]
  - Peripheral T-cell lymphoma unspecified [Unknown]

NARRATIVE: CASE EVENT DATE: 20170210
